FAERS Safety Report 4854539-5 (Version None)
Quarter: 2005Q4

REPORT INFORMATION
  Report Type: 
  Country: None (occurrence: None)
  Receive Date: 20051215
  Receipt Date: 20051208
  Transmission Date: 20060501
  Serious: Yes (Hospitalization)
  Sender: FDA-Public Use
  Company Number: US-ROCHE-428204

PATIENT
  Age: 56 Year
  Sex: Male
  Weight: 99.3 kg

DRUGS (5)
  1. PEG-INTERFERON ALFA 2A (RO 25-8310) [Suspect]
     Route: 058
     Dates: start: 20041105, end: 20051007
  2. RIBAVIRIN [Suspect]
     Route: 048
     Dates: start: 20041105, end: 20051007
  3. IBUPROFEN [Concomitant]
     Indication: NECK PAIN
     Dates: start: 19990615
  4. CLONAZEPAM [Concomitant]
     Indication: NECK PAIN
     Dates: start: 20030901
  5. HYDROCORTISONE [Concomitant]
     Dosage: ON AN AS NEEDED BASIS (PRN)
     Route: 061
     Dates: start: 20050320

REACTIONS (8)
  - ATRIOVENTRICULAR BLOCK FIRST DEGREE [None]
  - CHEST DISCOMFORT [None]
  - CHEST PAIN [None]
  - CHOLELITHIASIS [None]
  - ELECTROCARDIOGRAM T WAVE INVERSION [None]
  - PANCREATIC CYST [None]
  - PANCREATIC ENLARGEMENT [None]
  - TRICUSPID VALVE INCOMPETENCE [None]
